FAERS Safety Report 9051378 (Version 2)
Quarter: 2013Q1

REPORT INFORMATION
  Report Type: Spontaneous
  Country: US (occurrence: US)
  Receive Date: 20130206
  Receipt Date: 20130320
  Transmission Date: 20140127
  Serious: Yes (Other)
  Sender: FDA-Public Use
  Company Number: US-PFIZER INC-2013047784

PATIENT
  Age: 52 Year
  Sex: Male

DRUGS (4)
  1. ACCUPRIL [Suspect]
     Dosage: 10 MG, 1X/DAY
     Route: 048
  2. LANTUS SOLOSTAR [Concomitant]
     Dosage: 30 UNIT, 1X/DAY
     Route: 058
  3. METFORMIN [Concomitant]
     Dosage: 500 MG, 2X/DAY
     Route: 048
  4. LISINOPRIL [Concomitant]
     Dosage: 10 MG, 1X/DAY
     Route: 048

REACTIONS (4)
  - Type 2 diabetes mellitus [Unknown]
  - Diabetes mellitus inadequate control [Unknown]
  - Malaise [Unknown]
  - Fatigue [Unknown]
